FAERS Safety Report 6299296-3 (Version None)
Quarter: 2009Q3

REPORT INFORMATION
  Report Type: 
  Country: None (occurrence: None)
  Receive Date: 20090806
  Receipt Date: 20090728
  Transmission Date: 20100115
  Serious: Yes (Hospitalization, Other)
  Sender: FDA-Public Use
  Company Number: US-TYCO HEALTHCARE/MALLINCKRODT-T200901316

PATIENT
  Sex: Male
  Weight: 81.633 kg

DRUGS (15)
  1. OPTIMARK [Suspect]
     Indication: NUCLEAR MAGNETIC RESONANCE IMAGING
     Dosage: 20 ML (CC), SINGLE
     Route: 042
     Dates: start: 20040625, end: 20040625
  2. OMNISCAN [Suspect]
     Indication: NUCLEAR MAGNETIC RESONANCE IMAGING
     Dosage: UNK
     Route: 042
     Dates: start: 20020913, end: 20020913
  3. OMNISCAN [Suspect]
     Indication: ANGIOGRAM
     Dosage: 15 ML, SINGLE
     Route: 042
     Dates: start: 20030521, end: 20030521
  4. OMNISCAN [Suspect]
     Dosage: UNK
     Route: 042
     Dates: start: 20030623, end: 20030623
  5. OMNISCAN [Suspect]
     Dosage: 20 ML (CC), SINGLE
     Route: 042
     Dates: start: 20030905, end: 20030905
  6. MAGNEVIST [Suspect]
     Indication: NUCLEAR MAGNETIC RESONANCE IMAGING
     Dosage: 18 ML, SINGLE
     Route: 042
     Dates: start: 20050311, end: 20050311
  7. METOPROLOL SUCCINATE [Concomitant]
     Dosage: 50 MG, BID
  8. AMIODARONE HCL [Concomitant]
     Dosage: 200 MG, QD
  9. MS CONTIN [Concomitant]
     Dosage: 60 MG, BID
  10. MS CONTIN [Concomitant]
     Dosage: 45 MG, BID
  11. COUMADIN [Concomitant]
     Dosage: 5 MG, QD
  12. PHOSLO [Concomitant]
  13. INSULIN [Concomitant]
     Dosage: 5-7 UNITS TWICE A DAY
  14. ASPIRIN [Concomitant]
     Dosage: 81 MG, QD
  15. ALBUTEROL [Concomitant]
     Dosage: MDI; 4 PUFFS Q4H PRN

REACTIONS (11)
  - ABSCESS [None]
  - CARDIAC FAILURE CONGESTIVE [None]
  - DEPRESSION [None]
  - JOINT SPRAIN [None]
  - MYOCARDIAL INFARCTION [None]
  - NEPHROGENIC SYSTEMIC FIBROSIS [None]
  - OFF LABEL USE [None]
  - OSTEOMYELITIS [None]
  - PNEUMONIA [None]
  - STAPHYLOCOCCAL BACTERAEMIA [None]
  - SUPRAVENTRICULAR TACHYCARDIA [None]
